FAERS Safety Report 19265379 (Version 1)
Quarter: 2021Q2

REPORT INFORMATION
  Report Type: Spontaneous
  Country: US (occurrence: US)
  Receive Date: 20210517
  Receipt Date: 20210517
  Transmission Date: 20210717
  Serious: No
  Sender: FDA-Public Use
  Company Number: US-PFIZER INC-2021539421

PATIENT
  Sex: Female

DRUGS (54)
  1. DOCETAXEL. [Suspect]
     Active Substance: DOCETAXEL
     Indication: CHEMOTHERAPY
     Dosage: 160 MG
  2. TAXOTERE [Concomitant]
     Active Substance: DOCETAXEL
     Dosage: 169 MG, 1X/DAY
     Route: 042
     Dates: start: 20181106, end: 20181106
  3. TAXOTERE [Concomitant]
     Active Substance: DOCETAXEL
     Dosage: 165 MG, 1X/DAY
     Route: 042
     Dates: start: 20190108, end: 20190108
  4. PARAPLATIN [Concomitant]
     Active Substance: CARBOPLATIN
     Dosage: 620 MG, 1X/DAY
     Route: 042
     Dates: start: 20181218, end: 20181218
  5. HERCEPTIN [Concomitant]
     Active Substance: TRASTUZUMAB
     Indication: CHEMOTHERAPY
     Dosage: 900 MG, 1X/DAY
     Route: 042
     Dates: start: 20180925, end: 20180925
  6. HEPARIN [Concomitant]
     Active Substance: HEPARIN SODIUM
     Dosage: 500 IU, 1X/DAY
     Route: 042
     Dates: start: 20190108, end: 20190108
  7. SODIUM CHLORIDE. [Concomitant]
     Active Substance: SODIUM CHLORIDE
     Dosage: 1000 ML, 1X/DAY
     Route: 042
     Dates: start: 20190108, end: 20190108
  8. DECADRON [Concomitant]
     Active Substance: DEXAMETHASONE
     Dosage: 20 MG, 1X/DAY
     Route: 042
     Dates: start: 20181218, end: 20181218
  9. ALOXI [Concomitant]
     Active Substance: PALONOSETRON HYDROCHLORIDE
     Dosage: 250 UG, 1X/DAY
     Route: 042
     Dates: start: 20181218, end: 20181218
  10. NEULASTA [Concomitant]
     Active Substance: PEGFILGRASTIM
     Dosage: 6 MG, 1X/DAY
     Route: 058
     Dates: start: 20181106, end: 20181106
  11. TAXOTERE [Concomitant]
     Active Substance: DOCETAXEL
     Dosage: 165 MG, 1X/DAY
     Route: 042
     Dates: start: 20181127, end: 20181127
  12. HERCEPTIN [Concomitant]
     Active Substance: TRASTUZUMAB
     Dosage: 600 MG, 1X/DAY
     Route: 042
     Dates: start: 20190312, end: 20190312
  13. HEPARIN [Concomitant]
     Active Substance: HEPARIN SODIUM
     Dosage: 500 IU, 1X/DAY
     Route: 042
     Dates: start: 20181024, end: 20181024
  14. HEPARIN [Concomitant]
     Active Substance: HEPARIN SODIUM
     Dosage: 500 IU, 1X/DAY
     Route: 042
     Dates: start: 20181127, end: 20181127
  15. DECADRON [Concomitant]
     Active Substance: DEXAMETHASONE
     Dosage: 20 MG, 1X/DAY
     Route: 042
     Dates: start: 20181106, end: 20181106
  16. DECADRON [Concomitant]
     Active Substance: DEXAMETHASONE
     Dosage: 20 MG, 1X/DAY
     Route: 042
     Dates: start: 20181127, end: 20181127
  17. ALOXI [Concomitant]
     Active Substance: PALONOSETRON HYDROCHLORIDE
     Dosage: 250 UG, 1X/DAY
     Route: 042
     Dates: start: 20181106, end: 20181106
  18. HERCEPTIN [Concomitant]
     Active Substance: TRASTUZUMAB
     Dosage: 750 MG, 1X/DAY
     Route: 042
     Dates: start: 20181106, end: 20181106
  19. DECADRON [Concomitant]
     Active Substance: DEXAMETHASONE
     Dosage: 20 MG, 1X/DAY
     Route: 042
     Dates: start: 20181016, end: 20181016
  20. TAXOTERE [Concomitant]
     Active Substance: DOCETAXEL
     Dosage: 165 MG, 1X/DAY
     Route: 042
     Dates: start: 20181218, end: 20181218
  21. PARAPLATIN [Concomitant]
     Active Substance: CARBOPLATIN
     Dosage: 520 MG, 1X/DAY
     Route: 042
     Dates: start: 20181127, end: 20181127
  22. HERCEPTIN [Concomitant]
     Active Substance: TRASTUZUMAB
     Dosage: 954 MG, 1X/DAY
     Route: 042
     Dates: start: 20180925, end: 20180925
  23. HEPARIN [Concomitant]
     Active Substance: HEPARIN SODIUM
     Dosage: 500 IU, 1X/DAY
     Route: 042
     Dates: start: 20180925, end: 20180925
  24. NEULASTA [Concomitant]
     Active Substance: PEGFILGRASTIM
     Dosage: 6 MG, 1X/DAY
     Route: 058
     Dates: start: 20181016, end: 20181016
  25. PARAPLATIN [Concomitant]
     Active Substance: CARBOPLATIN
     Dosage: 510 MG, 1X/DAY
     Route: 042
     Dates: start: 20181016, end: 20181016
  26. HERCEPTIN [Concomitant]
     Active Substance: TRASTUZUMAB
     Dosage: 750 MG, 1X/DAY
     Route: 042
     Dates: start: 20190108, end: 20190108
  27. HEPARIN [Concomitant]
     Active Substance: HEPARIN SODIUM
     Dosage: 500 IU, 1X/DAY
     Route: 042
     Dates: start: 20181106, end: 20181106
  28. HEPARIN [Concomitant]
     Active Substance: HEPARIN SODIUM
     Dosage: 500 IU, 1X/DAY
     Route: 042
     Dates: start: 20181218, end: 20181218
  29. HEPARIN [Concomitant]
     Active Substance: HEPARIN SODIUM
     Dosage: 500 IU, 1X/DAY
     Route: 042
     Dates: start: 20190129, end: 20190129
  30. ALOXI [Concomitant]
     Active Substance: PALONOSETRON HYDROCHLORIDE
     Dosage: 250 UG, 1X/DAY
     Route: 042
     Dates: start: 20181127, end: 20181127
  31. TAXOTERE [Concomitant]
     Active Substance: DOCETAXEL
     Indication: CHEMOTHERAPY
     Dosage: 174 MG, 1X/DAY
     Route: 042
     Dates: start: 20180925, end: 20180925
  32. TAXOTERE [Concomitant]
     Active Substance: DOCETAXEL
     Dosage: 169 MG, 1X/DAY
     Route: 042
     Dates: start: 20181016, end: 20181016
  33. PARAPLATIN [Concomitant]
     Active Substance: CARBOPLATIN
     Dosage: 510 MG, 1X/DAY
     Route: 042
     Dates: start: 20190108, end: 20190108
  34. HEPARIN [Concomitant]
     Active Substance: HEPARIN SODIUM
     Dosage: 500 IU, 1X/DAY
     Route: 042
     Dates: start: 20190312, end: 20190312
  35. ALOXI [Concomitant]
     Active Substance: PALONOSETRON HYDROCHLORIDE
     Dosage: 250 UG, 1X/DAY
     Route: 042
     Dates: start: 20190108, end: 20190108
  36. HERCEPTIN [Concomitant]
     Active Substance: TRASTUZUMAB
     Dosage: 750 MG, 1X/DAY
     Route: 042
     Dates: start: 20181016, end: 20181016
  37. HEPARIN [Concomitant]
     Active Substance: HEPARIN SODIUM
     Dosage: 500 IU, 1X/DAY
     Route: 042
     Dates: start: 20190219, end: 20190219
  38. SODIUM CHLORIDE. [Concomitant]
     Active Substance: SODIUM CHLORIDE
     Dosage: 1000 ML, 1X/DAY
     Route: 042
     Dates: start: 20181024, end: 20181024
  39. SODIUM CHLORIDE. [Concomitant]
     Active Substance: SODIUM CHLORIDE
     Dosage: 1000 ML, 1X/DAY
     Route: 042
     Dates: start: 20190129, end: 20190129
  40. DECADRON [Concomitant]
     Active Substance: DEXAMETHASONE
     Dosage: 20 MG, 1X/DAY
     Route: 042
     Dates: start: 20190108, end: 20190108
  41. ALOXI [Concomitant]
     Active Substance: PALONOSETRON HYDROCHLORIDE
     Dosage: 250 UG, 1X/DAY
     Route: 042
     Dates: start: 20180925, end: 20180925
  42. ALOXI [Concomitant]
     Active Substance: PALONOSETRON HYDROCHLORIDE
     Dosage: 250 UG, 1X/DAY
     Route: 042
     Dates: start: 20181016, end: 20181016
  43. NEULASTA [Concomitant]
     Active Substance: PEGFILGRASTIM
     Dosage: 6 MG, 1X/DAY
     Route: 058
     Dates: start: 20180925, end: 20180925
  44. NEULASTA [Concomitant]
     Active Substance: PEGFILGRASTIM
     Dosage: 6 MG, 1X/DAY
     Route: 058
     Dates: start: 20181127, end: 20181127
  45. NEULASTA [Concomitant]
     Active Substance: PEGFILGRASTIM
     Dosage: 6 MG, 1X/DAY
     Route: 058
     Dates: start: 20181218, end: 20181218
  46. NEULASTA [Concomitant]
     Active Substance: PEGFILGRASTIM
     Dosage: 6 MG, 1X/DAY
     Route: 058
     Dates: start: 20190108, end: 20190108
  47. PARAPLATIN [Concomitant]
     Active Substance: CARBOPLATIN
     Indication: CHEMOTHERAPY
     Dosage: 540 MG, 1X/DAY
     Route: 042
     Dates: start: 20180925, end: 20180925
  48. PARAPLATIN [Concomitant]
     Active Substance: CARBOPLATIN
     Dosage: 520 MG, 1X/DAY
     Route: 042
     Dates: start: 20181106, end: 20181106
  49. HERCEPTIN [Concomitant]
     Active Substance: TRASTUZUMAB
     Dosage: 750 MG, 1X/DAY
     Route: 042
     Dates: start: 20181127, end: 20181127
  50. HERCEPTIN [Concomitant]
     Active Substance: TRASTUZUMAB
     Dosage: 750 MG, 1X/DAY
     Route: 042
     Dates: start: 20181218, end: 20181218
  51. HERCEPTIN [Concomitant]
     Active Substance: TRASTUZUMAB
     Dosage: 750 MG, 1X/DAY
     Route: 042
     Dates: start: 20190129, end: 20190129
  52. HERCEPTIN [Concomitant]
     Active Substance: TRASTUZUMAB
     Dosage: 600 MG, 1X/DAY
     Route: 042
     Dates: start: 20190219, end: 20190219
  53. HEPARIN [Concomitant]
     Active Substance: HEPARIN SODIUM
     Dosage: 500 IU, 1X/DAY
     Route: 042
     Dates: start: 20181016, end: 20181016
  54. DECADRON [Concomitant]
     Active Substance: DEXAMETHASONE
     Dosage: 20 MG, 1X/DAY
     Route: 042
     Dates: start: 20180925, end: 20180925

REACTIONS (1)
  - Eye injury [Unknown]
